FAERS Safety Report 10006818 (Version 2)
Quarter: 2014Q1

REPORT INFORMATION
  Report Type: Spontaneous
  Country: US (occurrence: US)
  Receive Date: 20140313
  Receipt Date: 20140313
  Transmission Date: 20141002
  Serious: No
  Sender: FDA-Public Use
  Company Number: US-GILEAD-2012-0063787

PATIENT
  Sex: Female

DRUGS (3)
  1. LETAIRIS [Suspect]
     Indication: PULMONARY ARTERIAL HYPERTENSION
     Dosage: 10 MG, QD
     Route: 048
     Dates: start: 20120620
  2. LETAIRIS [Suspect]
     Indication: SJOGREN^S SYNDROME
  3. REVATIO [Concomitant]

REACTIONS (9)
  - Immune system disorder [Unknown]
  - Tremor [Unknown]
  - Presyncope [Unknown]
  - Mineral supplementation [Unknown]
  - Chest discomfort [Unknown]
  - Anaemia [Unknown]
  - Dyspnoea [Unknown]
  - Nausea [Unknown]
  - Dizziness [Unknown]
